FAERS Safety Report 18570998 (Version 1)
Quarter: 2020Q4

REPORT INFORMATION
  Report Type: Spontaneous
  Country: US (occurrence: US)
  Receive Date: 20201202
  Receipt Date: 20201202
  Transmission Date: 20210114
  Serious: No
  Sender: FDA-Public Use
  Company Number: US-NOVEN PHARMACEUTICALS, INC.-2020US003697

PATIENT
  Age: 47 Year
  Sex: Female
  Weight: 90.7 kg

DRUGS (3)
  1. MINIVELLE [Suspect]
     Active Substance: ESTRADIOL
     Indication: HORMONE REPLACEMENT THERAPY
     Dosage: 0.1 MG; 1 PATCH CHANGED EVERY 3-4 DAYS
     Route: 062
     Dates: end: 2020
  2. ESTRADIOL. [Suspect]
     Active Substance: ESTRADIOL
     Indication: HORMONE REPLACEMENT THERAPY
     Dosage: 0.1 MG; 1 PATCH CHANGED EVERY 3-4 DAYS
     Route: 062
     Dates: start: 2020
  3. MINIVELLE [Suspect]
     Active Substance: ESTRADIOL
     Indication: OFF LABEL USE

REACTIONS (3)
  - Anxiety [Unknown]
  - Off label use [Recovered/Resolved]
  - Depression [Unknown]

NARRATIVE: CASE EVENT DATE: 202003
